FAERS Safety Report 7204805-3 (Version None)
Quarter: 2010Q4

REPORT INFORMATION
  Report Type: 
  Country: None (occurrence: None)
  Receive Date: 20101230
  Receipt Date: 20101222
  Transmission Date: 20110411
  Serious: Yes (Disabling, Other)
  Sender: FDA-Public Use
  Company Number: CA-PFIZER INC-2010130043

PATIENT
  Age: 78 Year
  Sex: Female
  Weight: 107 kg

DRUGS (16)
  1. LYRICA [Suspect]
     Indication: PAIN IN EXTREMITY
     Dosage: 50 MG, 2X/DAY
     Route: 048
     Dates: start: 20100926, end: 20101020
  2. METOPROLOL [Concomitant]
     Dosage: 75 MG, 2X/DAY
     Route: 048
     Dates: start: 20001124
  3. ISOSORBIDE MONONITRATE [Concomitant]
     Indication: ANGINA PECTORIS
     Dosage: 120 MG, 1X/DAY IN THE MORNING
     Route: 048
     Dates: start: 20081218
  4. ATORVASTATIN [Concomitant]
     Indication: DYSLIPIDAEMIA
     Dosage: 80 MG, 1X/DAY AT BEDTIME
     Route: 048
     Dates: start: 20071130
  5. LANOXIN [Concomitant]
     Indication: ATRIAL FIBRILLATION
     Dosage: 0.063 MG, 1X/DAY IN THE MORNING
     Route: 048
     Dates: start: 20091210
  6. LANOXIN [Concomitant]
     Indication: CARDIAC FAILURE
  7. FERROUS SULFATE [Concomitant]
     Indication: ANAEMIA
     Dosage: 300 MG, 1X/DAY AT BEDTIME
     Route: 048
     Dates: start: 20090302
  8. LANSOPRAZOLE [Concomitant]
     Dosage: 30 MG, 1X/DAY 30 MINUTES BEFORE BREAKFAST
     Dates: start: 20090224
  9. DOCUSATE SODIUM [Concomitant]
     Dosage: 100 MG, 1X/DAY AT BEDTIME IF NEEDED
     Dates: start: 20100923
  10. FUROSEMIDE [Concomitant]
     Dosage: 80 MG, 2X/DAY
     Dates: start: 20051210
  11. ASAPHEN [Concomitant]
     Dosage: 80 MG, 1X/DAY
     Dates: start: 20070201
  12. SPIRONOLACTONE [Concomitant]
     Dosage: 25 MG, 1X/DAY IN THE MORNING
     Dates: start: 20090224
  13. AMLODIPINE [Concomitant]
     Dosage: 10 MG, 1X/DAY IN THE MORNING
     Dates: start: 20070131
  14. WARFARIN [Concomitant]
     Indication: ATRIAL FIBRILLATION
     Dosage: 2.5 MG, 1X/DAY
     Route: 048
     Dates: start: 20020819
  15. NITROGLYCERIN [Concomitant]
     Indication: CHEST PAIN
     Dosage: 1 SPRAY AS NEEDED FOR CHEST PAIN
     Route: 060
     Dates: start: 20031223
  16. NOVOLIN GE [Concomitant]
     Dosage: 30/70
     Dates: start: 20080229

REACTIONS (7)
  - ABASIA [None]
  - EXPRESSIVE LANGUAGE DISORDER [None]
  - EYE SWELLING [None]
  - OEDEMA PERIPHERAL [None]
  - SOMNOLENCE [None]
  - SWELLING FACE [None]
  - VISION BLURRED [None]
